FAERS Safety Report 16794821 (Version 4)
Quarter: 2020Q4

REPORT INFORMATION
  Report Type: Spontaneous
  Country: US (occurrence: US)
  Receive Date: 20190911
  Receipt Date: 20201126
  Transmission Date: 20210113
  Serious: No
  Sender: FDA-Public Use
  Company Number: US-PFIZER INC-2019388905

PATIENT
  Age: 65 Year
  Sex: Female

DRUGS (3)
  1. BOSULIF [Suspect]
     Active Substance: BOSUTINIB MONOHYDRATE
     Dosage: 400 MG, CYCLIC (DAILY MONDAY-FRIDAY SKIP SATURDAY AND SUNDAY)
     Route: 048
  2. CRESTOR [Concomitant]
     Active Substance: ROSUVASTATIN CALCIUM
     Dosage: UNK
  3. BOSULIF [Suspect]
     Active Substance: BOSUTINIB MONOHYDRATE
     Indication: CHRONIC MYELOID LEUKAEMIA
     Dosage: 400 MG, 1X/DAY
     Route: 048
     Dates: start: 20190903

REACTIONS (8)
  - Product dose omission issue [Unknown]
  - Diarrhoea [Unknown]
  - Sciatica [Unknown]
  - Red blood cell count decreased [Unknown]
  - Nausea [Unknown]
  - Hypertension [Unknown]
  - Anxiety [Unknown]
  - Back injury [Unknown]

NARRATIVE: CASE EVENT DATE: 20190903
